FAERS Safety Report 25525671 (Version 1)
Quarter: 2025Q3

REPORT INFORMATION
  Report Type: Spontaneous
  Country: GB (occurrence: GB)
  Receive Date: 20250707
  Receipt Date: 20250707
  Transmission Date: 20251021
  Serious: Yes (Hospitalization, Disabling, Other)
  Sender: ELI LILLY AND COMPANY
  Company Number: None

PATIENT
  Age: 25 Year
  Sex: Male
  Weight: 109 kg

DRUGS (2)
  1. MOUNJARO [Suspect]
     Active Substance: TIRZEPATIDE
     Indication: Weight control
     Dosage: 15 MG, WEEKLY (1/W)
     Route: 065
     Dates: end: 20250310
  2. PROPECIA [Concomitant]
     Active Substance: FINASTERIDE
     Indication: Alopecia
     Dates: start: 20241210

REACTIONS (5)
  - Obstructive pancreatitis [Not Recovered/Not Resolved]
  - Cholelithiasis [Not Recovered/Not Resolved]
  - Lipase increased [Unknown]
  - Alanine aminotransferase increased [Unknown]
  - Abdominal pain [Unknown]

NARRATIVE: CASE EVENT DATE: 20250101
